FAERS Safety Report 9692624 (Version 6)
Quarter: 2014Q2

REPORT INFORMATION
  Report Type: Report from Study
  Country: DE (occurrence: DE)
  Receive Date: 20131118
  Receipt Date: 20140630
  Transmission Date: 20141212
  Serious: Yes (Hospitalization, Other)
  Sender: FDA-Public Use
  Company Number: PHHY2013DE128437

PATIENT
  Sex: Female
  Weight: 63.7 kg

DRUGS (10)
  1. AFINITOR [Suspect]
     Indication: BREAST CANCER METASTATIC
     Dosage: 10 MG, DAILY
     Route: 048
     Dates: start: 20130728, end: 20131025
  2. EXEMESTANE ACTAVIS [Suspect]
     Indication: BREAST CANCER METASTATIC
     Dosage: 25 MG, DAILY
     Route: 048
     Dates: start: 20130728, end: 20131025
  3. SIMVASTATIN [Concomitant]
     Dosage: 40 MG, QD
     Dates: start: 201301, end: 20131026
  4. GLIBENCLAMIDE [Concomitant]
     Indication: DIABETES MELLITUS
     Dosage: 3.5 MG
     Dates: start: 201310, end: 20131025
  5. L-THYROXIN [Concomitant]
  6. BELOC-ZOC MITE [Concomitant]
     Dates: end: 201310
  7. NOVODIGAL [Concomitant]
  8. OXYCODONE [Concomitant]
  9. ELIQUIS [Concomitant]
     Dosage: 2 DF, BID
  10. DEXAMETHASONE [Concomitant]
     Indication: APPETITE DISORDER
     Dosage: 4 MG, QD

REACTIONS (10)
  - Myositis [Recovering/Resolving]
  - Rhabdomyolysis [Recovering/Resolving]
  - Blood creatine phosphokinase increased [Recovered/Resolved]
  - C-reactive protein increased [Recovering/Resolving]
  - Muscular weakness [Recovering/Resolving]
  - Fatigue [Recovering/Resolving]
  - Atrial fibrillation [Unknown]
  - Blood glucose increased [Recovering/Resolving]
  - Epistaxis [Recovered/Resolved]
  - Oedema peripheral [Recovered/Resolved]
